FAERS Safety Report 22252936 (Version 1)
Quarter: 2023Q2

REPORT INFORMATION
  Report Type: Report from Study
  Country: CN (occurrence: CN)
  Receive Date: 20230426
  Receipt Date: 20230426
  Transmission Date: 20230722
  Serious: Yes (Other)
  Sender: FDA-Public Use
  Company Number: CN-SUN PHARMACEUTICAL INDUSTRIES LTD-2023R1-385522

PATIENT
  Age: 15 Year
  Sex: Female

DRUGS (2)
  1. CARBOPLATIN [Suspect]
     Active Substance: CARBOPLATIN
     Indication: Ovarian germ cell tumour
     Dosage: UNK AUC 5 MG/ML/MIN ADMINISTERED EVERY 3 WEEKS FOR 6 CYCLES
     Route: 065
  2. PACLITAXEL [Suspect]
     Active Substance: PACLITAXEL
     Indication: Ovarian germ cell tumour
     Dosage: 175 MILLIGRAM/SQ. METER ADMINISTERED EVERY 3 WEEKS FOR 6 CYCLES
     Route: 065

REACTIONS (1)
  - Disease recurrence [Unknown]
